FAERS Safety Report 13587468 (Version 1)
Quarter: 2017Q2

REPORT INFORMATION
  Report Type: Spontaneous
  Country: NL (occurrence: NL)
  Receive Date: 20170526
  Receipt Date: 20170526
  Transmission Date: 20170830
  Serious: Yes (Other)
  Sender: FDA-Public Use
  Company Number: NL-MYLANLABS-2015M1041582

PATIENT

DRUGS (2)
  1. PREDNISOLON MYLAN 20 MG, TABLETTEN [Suspect]
     Active Substance: PREDNISOLONE
     Indication: SINUSITIS
     Dosage: 1 DF, BID (2 KEER PER DAG 2 STUK(S))
     Route: 048
     Dates: start: 20151030
  2. CLARITHROMYCIN. [Suspect]
     Active Substance: CLARITHROMYCIN
     Dosage: 1 DF, BID (2 KEER PER DAG 2 STUK(S))
     Route: 048
     Dates: start: 20151030

REACTIONS (3)
  - Dysphonia [Recovered/Resolved]
  - Arrhythmia [Recovered/Resolved]
  - Tongue discolouration [Recovered/Resolved]

NARRATIVE: CASE EVENT DATE: 20151106
